FAERS Safety Report 9017373 (Version 1)
Quarter: 2013Q1

REPORT INFORMATION
  Report Type: Spontaneous
  Country: US (occurrence: US)
  Receive Date: 20130117
  Receipt Date: 20130117
  Transmission Date: 20140127
  Serious: No
  Sender: FDA-Public Use
  Company Number: US-PFIZER INC-2013020813

PATIENT
  Sex: Female

DRUGS (2)
  1. LYRICA [Suspect]
     Indication: INTERVERTEBRAL DISC PROTRUSION
     Dosage: 50 MG, 1X/DAY
     Route: 048
     Dates: start: 201301, end: 201301
  2. LYRICA [Suspect]
     Dosage: 100 MG, 1X/DAY (TAKING TWO 50MG CAPSULES)
     Route: 048
     Dates: start: 201301

REACTIONS (3)
  - Dry mouth [Unknown]
  - Insomnia [Unknown]
  - Off label use [Unknown]
